FAERS Safety Report 6999419-4 (Version None)
Quarter: 2010Q3

REPORT INFORMATION
  Report Type: 
  Country: None (occurrence: None)
  Receive Date: 20100920
  Receipt Date: 20100701
  Transmission Date: 20110219
  Serious: Yes (Hospitalization)
  Sender: FDA-Public Use
  Company Number: US-BAYER-201011568NA

PATIENT
  Age: 29 Year
  Sex: Female
  Weight: 82 kg

DRUGS (8)
  1. YAZ [Suspect]
     Indication: MENORRHAGIA
     Route: 048
     Dates: start: 20060901, end: 20070701
  2. CYMBALTA [Concomitant]
     Indication: DEPRESSION
     Dates: start: 20050801, end: 20080301
  3. HYDROCODONE [Concomitant]
     Indication: PAIN
     Dates: start: 20040601, end: 20090601
  4. LUNESTA [Concomitant]
     Indication: SLEEP DISORDER
     Dates: start: 20060801, end: 20080301
  5. OXYCODONE HCL [Concomitant]
     Indication: PAIN
     Dates: start: 20060901, end: 20070801
  6. ZYPREXA [Concomitant]
     Indication: ANXIETY
     Dates: start: 20060801, end: 20061101
  7. PAXIL [Concomitant]
     Indication: ANXIETY
     Dates: start: 20060801, end: 20061101
  8. PROZAC [Concomitant]
     Indication: ANXIETY
     Dates: start: 20060801, end: 20061101

REACTIONS (6)
  - ABDOMINAL PAIN UPPER [None]
  - ANXIETY [None]
  - CHEST PAIN [None]
  - DYSPNOEA [None]
  - PANIC ATTACK [None]
  - PULMONARY EMBOLISM [None]
